FAERS Safety Report 5292653-3 (Version None)
Quarter: 2007Q2

REPORT INFORMATION
  Report Type: 
  Country: None (occurrence: None)
  Receive Date: 20070404
  Receipt Date: 20070323
  Transmission Date: 20071010
  Serious: Yes (Hospitalization)
  Sender: FDA-Public Use
  Company Number: PAR_1346_2007

PATIENT
  Age: 80 Year
  Sex: Male
  Weight: 104.3273 kg

DRUGS (4)
  1. MECLIZINE HCL [Suspect]
     Indication: VERTIGO
     Dosage: 25 MG BID PO
     Route: 048
     Dates: start: 20070105, end: 20070107
  2. FAMTIDINE [Concomitant]
  3. DILTIAZEM HCL [Concomitant]
  4. MECLIZINE [Concomitant]

REACTIONS (1)
  - RASH [None]
